FAERS Safety Report 21157485 (Version 1)
Quarter: 2022Q3

REPORT INFORMATION
  Report Type: Spontaneous
  Country: US (occurrence: None)
  Receive Date: 20220730
  Receipt Date: 20220730
  Transmission Date: 20221027
  Serious: Yes (Disabling, Other)
  Sender: FDA-Public Use
  Company Number: None

PATIENT
  Age: 74 Year
  Sex: Female
  Weight: 60.75 kg

DRUGS (2)
  1. EFFEXOR [Suspect]
     Active Substance: VENLAFAXINE HYDROCHLORIDE
     Indication: Fibromyalgia
     Dosage: OTHER QUANTITY : 1 CAPSULE(S);?FREQUENCY : DAILY;?
     Route: 048
  2. CLARINEX [Concomitant]
     Active Substance: DESLORATADINE

REACTIONS (11)
  - Withdrawal syndrome [None]
  - Insomnia [None]
  - Nausea [None]
  - Headache [None]
  - Tinnitus [None]
  - Pruritus [None]
  - Mood swings [None]
  - Decreased appetite [None]
  - Dizziness [None]
  - Palpitations [None]
  - Disturbance in attention [None]

NARRATIVE: CASE EVENT DATE: 20200115
